FAERS Safety Report 4631409-9 (Version None)
Quarter: 2005Q2

REPORT INFORMATION
  Report Type: 
  Country: None (occurrence: None)
  Receive Date: 20050407
  Receipt Date: 20050325
  Transmission Date: 20051028
  Serious: Yes (Other)
  Sender: FDA-Public Use
  Company Number: 2005049737

PATIENT
  Sex: Female
  Weight: 46.7205 kg

DRUGS (1)
  1. ESTRING [Suspect]
     Indication: UTERINE PROLAPSE
     Dosage: EVERY THREE MONTHS, VAGINAL
     Route: 067
     Dates: start: 20030101

REACTIONS (4)
  - DRUG EFFECT DECREASED [None]
  - PALPITATIONS [None]
  - VAGINAL DISCHARGE [None]
  - VULVOVAGINAL DRYNESS [None]
